FAERS Safety Report 6085850-0 (Version None)
Quarter: 2009Q1

REPORT INFORMATION
  Report Type: 
  Country: None (occurrence: None)
  Receive Date: 20090220
  Receipt Date: 20090216
  Transmission Date: 20090719
  Serious: Yes (Hospitalization)
  Sender: FDA-Public Use
  Company Number: B0558454A

PATIENT
  Sex: Female

DRUGS (6)
  1. ZANTAC [Suspect]
     Indication: PREMEDICATION
     Route: 065
     Dates: start: 20080417, end: 20090205
  2. DECADRON [Concomitant]
     Indication: PREMEDICATION
     Route: 065
  3. POLARAMINE [Concomitant]
     Indication: PREMEDICATION
     Route: 065
  4. DEXTROSE [Concomitant]
     Route: 065
  5. PACLITAXEL [Concomitant]
     Route: 065
  6. CARBOPLATIN [Concomitant]
     Route: 065

REACTIONS (4)
  - ANAPHYLACTIC SHOCK [None]
  - DISCOMFORT [None]
  - LOSS OF CONSCIOUSNESS [None]
  - MUSCULOSKELETAL STIFFNESS [None]
